FAERS Safety Report 8287575-X (Version None)
Quarter: 2012Q2

REPORT INFORMATION
  Report Type: 
  Country: None (occurrence: None)
  Receive Date: 20120416
  Receipt Date: 20120406
  Transmission Date: 20120825
  Serious: Yes (Hospitalization)
  Sender: FDA-Public Use
  Company Number: PHEH2011US012869

PATIENT
  Sex: Female
  Weight: 86.168 kg

DRUGS (2)
  1. AFINITOR [Suspect]
     Indication: PANCREATIC NEUROENDOCRINE TUMOUR
     Dosage: 10 MG, QD
     Route: 048
     Dates: start: 20110712, end: 20111104
  2. SANDOSTATIN LAR [Concomitant]
     Dosage: 20 MG, UNK

REACTIONS (6)
  - BLOOD CREATININE INCREASED [None]
  - BLOOD GLUCOSE INCREASED [None]
  - HAEMATOMA [None]
  - SKIN NECROSIS [None]
  - ECCHYMOSIS [None]
  - PERIPHERAL VASCULAR DISORDER [None]
